FAERS Safety Report 16001675 (Version 1)
Quarter: 2019Q1

REPORT INFORMATION
  Report Type: Spontaneous
  Country: US (occurrence: US)
  Receive Date: 20190225
  Receipt Date: 20190225
  Transmission Date: 20190418
  Serious: No
  Sender: FDA-Public Use
  Company Number: US-ALLERGAN-1822948US

PATIENT
  Age: 62 Year
  Sex: Female

DRUGS (3)
  1. PAXIL [Concomitant]
     Active Substance: PAROXETINE HYDROCHLORIDE
     Indication: PRODUCT USED FOR UNKNOWN INDICATION
     Dosage: UNK
     Route: 048
  2. HYDROCODONE [Concomitant]
     Active Substance: HYDROCODONE
     Indication: BACK PAIN
     Dosage: 7.5/325 MG, PRN
     Route: 048
  3. HYDROCODONE BITARTRATE;ACETAMINOPHEN UNK [Suspect]
     Active Substance: ACETAMINOPHEN\HYDROCODONE BITARTRATE
     Indication: TOOTH INFECTION
     Dosage: UNK
     Route: 048
     Dates: start: 20180423

REACTIONS (3)
  - Drug ineffective [Unknown]
  - Wrong technique in product usage process [Unknown]
  - Somnolence [Unknown]

NARRATIVE: CASE EVENT DATE: 20180423
